FAERS Safety Report 18772418 (Version 1)
Quarter: 2021Q1

REPORT INFORMATION
  Report Type: Spontaneous
  Country: US (occurrence: US)
  Receive Date: 20210121
  Receipt Date: 20210121
  Transmission Date: 20210419
  Serious: No
  Sender: FDA-Public Use
  Company Number: US-BRACCO-2020US05245

PATIENT
  Age: 66 Year
  Sex: Male

DRUGS (1)
  1. LIQUID POLIBAR PLUS [Suspect]
     Active Substance: BARIUM SULFATE
     Indication: X-RAY GASTROINTESTINAL TRACT
     Dosage: 6 OZ, SINGLE
     Dates: start: 20201214, end: 20201214

REACTIONS (3)
  - Product physical consistency issue [Unknown]
  - Drug ineffective [Unknown]
  - No adverse event [Unknown]

NARRATIVE: CASE EVENT DATE: 20201214
